FAERS Safety Report 9708507 (Version 1)
Quarter: 2013Q4

REPORT INFORMATION
  Report Type: Report from Study
  Country: US (occurrence: US)
  Receive Date: 20131125
  Receipt Date: 20131125
  Transmission Date: 20140711
  Serious: Yes (Other)
  Sender: FDA-Public Use
  Company Number: US-ABBVIE-13P-163-1171171-00

PATIENT
  Age: 63 Year
  Sex: Female
  Weight: 95.34 kg

DRUGS (16)
  1. HUMIRA [Suspect]
     Indication: PSORIATIC ARTHROPATHY
     Dates: start: 20071210, end: 20131011
  2. TRIAMTERENE [Concomitant]
     Indication: HYPERTENSION
  3. METOPROLOL [Concomitant]
     Indication: HYPERTENSION
  4. TRILIPIX [Concomitant]
     Indication: BLOOD CHOLESTEROL INCREASED
  5. SIMVASTATIN [Concomitant]
     Indication: BLOOD CHOLESTEROL INCREASED
  6. MONTELUKAST [Concomitant]
     Indication: ASTHMA
  7. VENLAFAXINE [Concomitant]
     Indication: DEPRESSION
  8. VENLAFAXINE [Concomitant]
     Indication: PAIN
  9. ZYRTEC [Concomitant]
     Indication: HYPERSENSITIVITY
  10. OMEGA 3 [Concomitant]
     Indication: SUPPLEMENTATION THERAPY
  11. CALCIUM [Concomitant]
     Indication: MINERAL SUPPLEMENTATION
  12. VITAMIN D [Concomitant]
     Indication: VITAMIN SUPPLEMENTATION
  13. ECHINACEA [Concomitant]
     Indication: SUPPLEMENTATION THERAPY
  14. AREDS 2 [Concomitant]
     Indication: FAMILIAL RISK FACTOR
  15. CRANBERRY EXTRACT [Concomitant]
     Indication: SUPPLEMENTATION THERAPY
  16. SOY ISOFLAVONE [Concomitant]
     Indication: SUPPLEMENTATION THERAPY

REACTIONS (13)
  - Diabetes mellitus [Not Recovered/Not Resolved]
  - Neck mass [Not Recovered/Not Resolved]
  - Thyroid neoplasm [Not Recovered/Not Resolved]
  - Thyroid cancer [Not Recovered/Not Resolved]
  - Hypoaesthesia [Not Recovered/Not Resolved]
  - Hypoaesthesia [Not Recovered/Not Resolved]
  - Loss of consciousness [Recovered/Resolved]
  - Glossodynia [Recovered/Resolved]
  - Swollen tongue [Recovered/Resolved]
  - Feeling hot [Recovered/Resolved]
  - Dehydration [Recovered/Resolved]
  - Salivary gland calculus [Recovered/Resolved]
  - Salivary duct obstruction [Recovered/Resolved]
